FAERS Safety Report 25757397 (Version 1)
Quarter: 2025Q3

REPORT INFORMATION
  Report Type: Spontaneous
  Country: US (occurrence: US)
  Receive Date: 20250903
  Receipt Date: 20250903
  Transmission Date: 20251020
  Serious: No
  Sender: BRISTOL-MYERS SQUIBB COMPANY
  Company Number: US-BRISTOL-MYERS SQUIBB COMPANY-2025-122026

PATIENT
  Age: 77 Year
  Sex: Male

DRUGS (1)
  1. IDHIFA [Suspect]
     Active Substance: ENASIDENIB MESYLATE
     Indication: Product used for unknown indication
     Dosage: TAKE ONE TABLET ONCE DAILY FOR 196 DAYS. TAKE ON DAYS 1-28 OF EVERY CYCLE
     Route: 048

REACTIONS (2)
  - Diarrhoea [Unknown]
  - White blood cell count decreased [Unknown]
